FAERS Safety Report 6125337-X (Version None)
Quarter: 2009Q1

REPORT INFORMATION
  Report Type: 
  Country: None (occurrence: None)
  Receive Date: 20090317
  Receipt Date: 20090305
  Transmission Date: 20090719
  Serious: Yes (Hospitalization)
  Sender: FDA-Public Use
  Company Number: GXKR2009CH02947

PATIENT
  Sex: Female

DRUGS (8)
  1. EPRIL SUBMITE (NGX) (ENALAPRIL MALEATE) TABLET [Suspect]
     Indication: ESSENTIAL HYPERTENSION
     Dosage: 5 MG, BID, ORAL
     Route: 048
     Dates: start: 20071105, end: 20071108
  2. PERINDOPRIL ERBUMINE [Suspect]
     Indication: ESSENTIAL HYPERTENSION
     Dosage: 4 MG, QD, ORAL
     Route: 048
     Dates: start: 20071218, end: 20080624
  3. METOPROLOL SUCCINATE [Suspect]
     Indication: ACUTE MYOCARDIAL INFARCTION
     Dosage: 25 MG, QD, ORAL
     Route: 048
     Dates: start: 20071105
  4. ARICEPT [Suspect]
     Indication: DEMENTIA ALZHEIMER'S TYPE
     Dosage: 10 MG, QD, ORAL
     Route: 048
     Dates: start: 20071129
  5. ASPIRIN [Suspect]
     Dosage: 100 MG, QD, ORAL
     Route: 048
     Dates: start: 20070101
  6. NITRODERM [Concomitant]
  7. AXIOLIT (OXAZEPAM) [Concomitant]
  8. ATORVASTATIN CALCIUM [Concomitant]

REACTIONS (3)
  - HEPATIC STEATOSIS [None]
  - PSEUDOLYMPHOMA [None]
  - RASH PAPULOSQUAMOUS [None]
